FAERS Safety Report 4861678-1 (Version None)
Quarter: 2005Q4

REPORT INFORMATION
  Report Type: 
  Country: None (occurrence: None)
  Receive Date: 20051130
  Receipt Date: 20050302
  Transmission Date: 20060501
  Serious: Yes (Other)
  Sender: FDA-Public Use
  Company Number: 2004236502US

PATIENT
  Age: 55 Year
  Sex: Male

DRUGS (2)
  1. ZYVOX [Suspect]
     Indication: ENDOCARDITIS
     Dosage: 1200 MG (600 MG,BID),PARENTERAL
     Route: 051
  2. SELECTIVE BETA-2-ADRENORECEPTOR AGONISTS (SELECTIVE BETA-2-ADRENORECEP [Concomitant]

REACTIONS (1)
  - LACTIC ACIDOSIS [None]
